FAERS Safety Report 6800539-5 (Version None)
Quarter: 2010Q2

REPORT INFORMATION
  Report Type: 
  Country: None (occurrence: None)
  Receive Date: 20100629
  Receipt Date: 20100621
  Transmission Date: 20101027
  Serious: No
  Sender: FDA-Public Use
  Company Number: US-BIOGENIDEC-2010BI021466

PATIENT
  Age: 46 Year
  Sex: Male

DRUGS (4)
  1. TYSABRI [Suspect]
     Indication: MULTIPLE SCLEROSIS
     Route: 042
     Dates: start: 20061201, end: 20091028
  2. TYSABRI [Suspect]
     Route: 042
     Dates: start: 20100129
  3. XANAX [Concomitant]
     Indication: ANXIETY
  4. AMBIEN [Concomitant]
     Indication: INSOMNIA

REACTIONS (3)
  - MOBILITY DECREASED [None]
  - SENSORY DISTURBANCE [None]
  - TREMOR [None]
